FAERS Safety Report 9066671 (Version 8)
Quarter: 2014Q3

REPORT INFORMATION
  Report Type: Report from Study
  Country: ES (occurrence: ES)
  Receive Date: 20130214
  Receipt Date: 20140716
  Transmission Date: 20150326
  Serious: Yes (Death, Life-Threatening, Hospitalization, Other)
  Sender: FDA-Public Use
  Company Number: ES-OTSUKA-EU-2011-10281

PATIENT
  Age: 68 Year
  Sex: Male
  Weight: 59 kg

DRUGS (30)
  1. SAMSCA [Suspect]
     Active Substance: TOLVAPTAN
     Indication: INAPPROPRIATE ANTIDIURETIC HORMONE SECRETION
     Dosage: 15 MG MILLIGRAM(S), DAILY DOSE
     Route: 048
     Dates: start: 20111125, end: 20111202
  2. TORASEMIDE [Concomitant]
     Active Substance: TORSEMIDE
     Indication: PROPHYLAXIS
     Dosage: 10 MG MILLIGRAM(S), DAILY DOSE
     Route: 048
     Dates: start: 20111117, end: 20111130
  3. PANTOPRAZOLE [Concomitant]
     Active Substance: PANTOPRAZOLE SODIUM
     Indication: MALLORY-WEISS SYNDROME
     Dosage: 120 MG MILLIGRAM(S), DAILY DOSE
     Route: 042
     Dates: start: 20111205, end: 20111222
  4. RAMIPRIL. [Concomitant]
     Active Substance: RAMIPRIL
     Dosage: 2.5 MG MILLIGRAM(S), DAILY DOSE
     Route: 048
     Dates: start: 20111203, end: 20111222
  5. ESPIRONOLACTON [Concomitant]
     Indication: CARDIAC VALVE DISEASE
     Dosage: 25 MG MILLIGRAM(S), DAILY DOSE
     Route: 048
     Dates: start: 20111130, end: 20111203
  6. BUDESONIDE. [Concomitant]
     Active Substance: BUDESONIDE
     Indication: PNEUMONIA ASPIRATION
     Dosage: 1.5 MG MILLIGRAM(S), DAILY DOSE
     Route: 045
     Dates: start: 20111203, end: 20111205
  7. WARFARIN [Concomitant]
     Active Substance: WARFARIN
     Indication: ATRIAL FIBRILLATION
     Dosage: 5 MG MILLIGRAM(S), DAILY DOSE
     Route: 048
     Dates: start: 20091201, end: 20111202
  8. OMEPRAZOLE. [Concomitant]
     Active Substance: OMEPRAZOLE
     Indication: PROPHYLAXIS
     Dosage: 20 MG MILLIGRAM(S), DAILY DOSE
     Route: 048
     Dates: start: 20091201, end: 20111203
  9. LORAZEPAM. [Concomitant]
     Active Substance: LORAZEPAM
     Indication: ANXIETY
     Dosage: 1 MG MILLIGRAM(S), DAILY DOSE
     Route: 048
     Dates: start: 20110112, end: 20111203
  10. PARACETAMOL [Concomitant]
     Active Substance: ACETAMINOPHEN
     Indication: MYALGIA
     Dosage: 500 MG MILLIGRAM(S), DAILY DOSE
     Route: 048
     Dates: start: 20110801, end: 20111203
  11. TAMSULOSIN [Concomitant]
     Active Substance: TAMSULOSIN
     Indication: PROSTATIC DISORDER
     Dosage: 0.4 MG MILLIGRAM(S), DAILY DOSE
     Route: 048
     Dates: start: 20111121
  12. ENOXAPARIN [Concomitant]
     Active Substance: ENOXAPARIN
     Indication: THROMBOSIS PROPHYLAXIS
     Dosage: 120 MG MILLIGRAM(S), DAILY DOSE
     Route: 048
     Dates: start: 20111203, end: 20111205
  13. CARVEDILOL. [Concomitant]
     Active Substance: CARVEDILOL
     Dosage: 1.5 MG MILLIGRAM(S), DAILY DOSE
     Route: 048
     Dates: start: 20111203, end: 20111205
  14. SULPIRIDE [Concomitant]
     Active Substance: SULPIRIDE
     Indication: ASTHENIA
     Dosage: 150 MG MILLIGRAM(S), DAILY DOSE
     Route: 048
     Dates: start: 20111116, end: 20111130
  15. CIPROFLOXACIN. [Concomitant]
     Active Substance: CIPROFLOXACIN
     Indication: URINARY TRACT INFECTION
     Dosage: 1000 MG MILLIGRAM(S), DAILY DOSE
     Route: 048
     Dates: start: 20111125, end: 20111130
  16. PANTOPRAZOLE [Concomitant]
     Active Substance: PANTOPRAZOLE SODIUM
     Indication: PROPHYLAXIS
  17. PANTOPRAZOLE [Concomitant]
     Active Substance: PANTOPRAZOLE SODIUM
     Indication: MALLORY-WEISS SYNDROME
     Dosage: 40 MG MILLIGRAM(S), DAILY DOSE
     Route: 042
     Dates: start: 20111203, end: 20111204
  18. CITALOPRAM [Concomitant]
     Active Substance: CITALOPRAM HYDROBROMIDE
     Indication: DEPRESSION
     Dosage: 20 MG MILLIGRAM(S), DAILY DOSE
     Route: 048
     Dates: start: 20110112, end: 20111203
  19. CLOPIDOGREL [Concomitant]
     Active Substance: CLOPIDOGREL BISULFATE
     Indication: PROPHYLAXIS
     Dosage: 75 MG MILLIGRAM(S), DAILY DOSE
     Route: 048
     Dates: start: 20111113, end: 20111130
  20. ATORVASTATIN [Concomitant]
     Active Substance: ATORVASTATIN
     Dosage: 20 MG MILLIGRAM(S), DAILY DOSE
     Route: 048
     Dates: start: 20111203, end: 20111205
  21. CARVEDILOL. [Concomitant]
     Active Substance: CARVEDILOL
     Indication: ATRIAL FIBRILLATION
     Dosage: 12.5 MG MILLIGRAM(S), DAILY DOSE
     Route: 048
     Dates: start: 20111113, end: 20111203
  22. HYDROCORTISONE. [Concomitant]
     Active Substance: HYDROCORTISONE
     Indication: ASTHENIA
  23. HYDROCORTISONE. [Concomitant]
     Active Substance: HYDROCORTISONE
     Indication: HYPONATRAEMIA
  24. ACETYLSALICYLIC ACID [Concomitant]
     Active Substance: ASPIRIN
     Indication: PROPHYLAXIS
     Dosage: 100 MG MILLIGRAM(S), DAILY DOSE
     Route: 048
     Dates: start: 20111113, end: 20111202
  25. ATORVASTATIN [Concomitant]
     Active Substance: ATORVASTATIN
     Indication: PROPHYLAXIS
     Dosage: 80 MG MILLIGRAM(S), DAILY DOSE
     Route: 048
     Dates: start: 20111113, end: 20111203
  26. RAMIPRIL. [Concomitant]
     Active Substance: RAMIPRIL
     Indication: CARDIAC VALVE DISEASE
     Dosage: 2.5 MG MILLIGRAM(S), DAILY DOSE
     Route: 048
     Dates: start: 20111113
  27. ENOXAPARIN [Concomitant]
     Active Substance: ENOXAPARIN
     Indication: RHABDOMYOLYSIS
  28. HYDROCORTISONE. [Concomitant]
     Active Substance: HYDROCORTISONE
     Indication: FATIGUE
     Dosage: 300 MG MILLIGRAM(S), DAILY DOSE
     Route: 042
     Dates: start: 20111123, end: 20111127
  29. IPRATROPIUM [Concomitant]
     Active Substance: IPRATROPIUM
     Indication: PNEUMONIA ASPIRATION
     Dosage: 2 MG MILLIGRAM(S), DAILY DOSE
     Route: 055
     Dates: start: 20111203, end: 20111205
  30. OXYGEN. [Concomitant]
     Active Substance: OXYGEN
     Indication: PNEUMONIA ASPIRATION
     Dosage: 3 L LITRE(S), UNKNOWN
     Route: 045
     Dates: start: 20111203, end: 20111205

REACTIONS (12)
  - Atrial thrombosis [Recovered/Resolved]
  - Respiratory failure [Fatal]
  - Hepatic congestion [Fatal]
  - Mallory-Weiss syndrome [Recovered/Resolved with Sequelae]
  - Cholelithiasis [Recovered/Resolved]
  - Overdose [Recovered/Resolved]
  - Pneumonia aspiration [Fatal]
  - Cardiac failure acute [Fatal]
  - Cystitis [Recovered/Resolved]
  - Sepsis [Fatal]
  - Pleural effusion [Fatal]
  - Rhabdomyolysis [Recovered/Resolved with Sequelae]

NARRATIVE: CASE EVENT DATE: 20111203
